FAERS Safety Report 23386436 (Version 1)
Quarter: 2024Q1

REPORT INFORMATION
  Report Type: Spontaneous
  Country: US (occurrence: US)
  Receive Date: 20240110
  Receipt Date: 20240110
  Transmission Date: 20240409
  Serious: Yes (Other)
  Sender: FDA-Public Use
  Company Number: US-ELI_LILLY_AND_COMPANY-US202401001319

PATIENT
  Sex: Male

DRUGS (1)
  1. BASAGLAR [Suspect]
     Active Substance: INSULIN GLARGINE
     Indication: Diabetes mellitus
     Dosage: 18 U, DAILY
     Route: 065
     Dates: start: 20231201

REACTIONS (4)
  - Atrial fibrillation [Unknown]
  - Blood magnesium decreased [Unknown]
  - Diarrhoea [Recovered/Resolved]
  - Drug ineffective [Unknown]
